FAERS Safety Report 15210674 (Version 1)
Quarter: 2018Q4

REPORT INFORMATION
  Report Type: Spontaneous
  Country: FR (occurrence: FR)
  Receive Date: 20180728
  Receipt Date: 20180728
  Transmission Date: 20190204
  Serious: Yes (Hospitalization)
  Sender: FDA-Public Use
  Company Number: FR-TEVA-2018-FR-930317

PATIENT
  Age: 45 Year
  Sex: Female

DRUGS (2)
  1. DUPHASTON [Suspect]
     Active Substance: DYDROGESTERONE
     Indication: HYPOGONADISM
     Route: 048
     Dates: end: 2005
  2. ESTRADIOL THERAMEX [Suspect]
     Active Substance: ESTRADIOL
     Indication: HYPOGONADISM
     Route: 048
     Dates: end: 2009

REACTIONS (1)
  - Meningioma [Recovered/Resolved with Sequelae]

NARRATIVE: CASE EVENT DATE: 20000620
